FAERS Safety Report 15756756 (Version 1)
Quarter: 2018Q4

REPORT INFORMATION
  Report Type: Spontaneous
  Country: US (occurrence: US)
  Receive Date: 20181206
  Receipt Date: 20181206
  Transmission Date: 20190205
  Serious: No
  Sender: FDA-Public Use
  Company Number: None

PATIENT
  Age: 59 Year
  Sex: Male

DRUGS (1)
  1. STELARA [Suspect]
     Active Substance: USTEKINUMAB
     Dates: start: 201806

REACTIONS (4)
  - Musculoskeletal pain [None]
  - Arthritis [None]
  - Product substitution issue [None]
  - Pain in extremity [None]

NARRATIVE: CASE EVENT DATE: 20181105
